FAERS Safety Report 22110111 (Version 1)
Quarter: 2023Q1

REPORT INFORMATION
  Report Type: Spontaneous
  Country: US (occurrence: US)
  Receive Date: 20230317
  Receipt Date: 20230317
  Transmission Date: 20230418
  Serious: No
  Sender: FDA-Public Use
  Company Number: US-BAYER-2023A032748

PATIENT
  Age: 77 Year
  Sex: Male

DRUGS (4)
  1. MIRALAX [Suspect]
     Active Substance: POLYETHYLENE GLYCOL 3350
     Indication: Colonoscopy
     Dosage: 8.3OZ OF MIRALAX WITH 64 OZ GATORADE
     Route: 048
     Dates: start: 20230306, end: 20230306
  2. CLONAZEPAM [Concomitant]
     Active Substance: CLONAZEPAM
     Indication: Prophylaxis
     Dosage: 0.5 MG,AS NEEDED ONLY
     Route: 048
     Dates: start: 1993
  3. AMLODIPINE [Concomitant]
     Active Substance: AMLODIPINE BESYLATE
     Indication: Prophylaxis
     Dosage: 10 MG, QD
     Route: 048
     Dates: start: 2003
  4. ATORVASTATIN [Concomitant]
     Active Substance: ATORVASTATIN
     Indication: Prophylaxis
     Dosage: 10 MG, QD
     Route: 048
     Dates: start: 2003

REACTIONS (4)
  - Dizziness [Recovered/Resolved]
  - Off label use [Recovered/Resolved]
  - Dyspnoea [Recovered/Resolved]
  - Chills [Recovered/Resolved]

NARRATIVE: CASE EVENT DATE: 20230306
